FAERS Safety Report 19649235 (Version 2)
Quarter: 2021Q4

REPORT INFORMATION
  Report Type: Report from Study
  Country: CN (occurrence: CN)
  Receive Date: 20210802
  Receipt Date: 20211005
  Transmission Date: 20220303
  Serious: Yes (Other)
  Sender: FDA-Public Use
  Company Number: CN-JNJFOC-20210756243

PATIENT

DRUGS (1)
  1. BORTEZOMIB [Suspect]
     Active Substance: BORTEZOMIB
     Indication: Product used for unknown indication
     Dosage: 3.5 MILLIGRAM
     Route: 065

REACTIONS (4)
  - Spinal fracture [Unknown]
  - Neuralgia [Unknown]
  - Fatigue [Unknown]
  - Asthenia [Unknown]
